FAERS Safety Report 14710346 (Version 1)
Quarter: 2018Q2

REPORT INFORMATION
  Report Type: Spontaneous
  Country: US (occurrence: US)
  Receive Date: 20180403
  Receipt Date: 20180403
  Transmission Date: 20180711
  Serious: No
  Sender: FDA-Public Use
  Company Number: US-ROCHE-1978861

PATIENT
  Age: 59 Year
  Sex: Female

DRUGS (1)
  1. ERIVEDGE [Suspect]
     Active Substance: VISMODEGIB
     Indication: METASTATIC NEOPLASM
     Route: 048
     Dates: start: 20161014

REACTIONS (2)
  - Muscle spasms [Unknown]
  - Fatigue [Unknown]

NARRATIVE: CASE EVENT DATE: 20170707
